FAERS Safety Report 9263030 (Version 1)
Quarter: 2013Q2

REPORT INFORMATION
  Report Type: Spontaneous
  Country: BR (occurrence: BR)
  Receive Date: 20130430
  Receipt Date: 20130430
  Transmission Date: 20140414
  Serious: Yes (Hospitalization)
  Sender: FDA-Public Use
  Company Number: BR-BRISTOL-MYERS SQUIBB COMPANY-18832253

PATIENT
  Age: 77 Year
  Sex: Female
  Weight: 50 kg

DRUGS (2)
  1. APROZIDE [Suspect]
     Dosage: IRBASETRAN+HYDROCHLOROTHIAZIDE-300/12.5MG
     Route: 048
     Dates: start: 2005
  2. NPH INSULIN [Concomitant]

REACTIONS (3)
  - Blood glucose fluctuation [Recovered/Resolved]
  - Gastrointestinal infection [Recovered/Resolved]
  - Syncope [Recovered/Resolved]
